FAERS Safety Report 10789141 (Version 1)
Quarter: 2015Q1

REPORT INFORMATION
  Report Type: Spontaneous
  Country: US (occurrence: None)
  Receive Date: 20150211
  Receipt Date: 20150211
  Transmission Date: 20150721
  Serious: Yes (Hospitalization)
  Sender: FDA-Public Use
  Company Number: None

PATIENT
  Age: 35 Year
  Sex: Male
  Weight: 77.11 kg

DRUGS (1)
  1. MIRVASO [Suspect]
     Active Substance: BRIMONIDINE TARTRATE
     Indication: ROSACEA
     Dosage: ONCE DAILY, APPLIED TO A SURFACE, USUALLY THE SKIN
     Dates: start: 20150203, end: 20150206

REACTIONS (6)
  - Dizziness [None]
  - Pallor [None]
  - Erythema [None]
  - Skin tightness [None]
  - Flushing [None]
  - Skin burning sensation [None]

NARRATIVE: CASE EVENT DATE: 20150206
